FAERS Safety Report 19921040 (Version 2)
Quarter: 2021Q4

REPORT INFORMATION
  Report Type: Spontaneous
  Country: US (occurrence: US)
  Receive Date: 20211006
  Receipt Date: 20211103
  Transmission Date: 20220303
  Serious: Yes (Other)
  Sender: FDA-Public Use
  Company Number: US-VERICEL-US-VCEL-21-000162

PATIENT
  Age: 40 Year
  Sex: Female

DRUGS (1)
  1. MACI [Suspect]
     Active Substance: AUTOLOGOUS CULTURED CHONDROCYTES\SUS SCROFA COLLAGEN
     Indication: Cartilage injury
     Dosage: 1 DOSAGE FORM, SINGLE
     Route: 050
     Dates: start: 20210714

REACTIONS (3)
  - Inflammation [Not Recovered/Not Resolved]
  - Arthritis [Not Recovered/Not Resolved]
  - Chondrocalcinosis pyrophosphate [Not Recovered/Not Resolved]

NARRATIVE: CASE EVENT DATE: 20210922
